FAERS Safety Report 8529419 (Version 3)
Quarter: 2014Q3

REPORT INFORMATION
  Report Type: Spontaneous
  Country: US (occurrence: US)
  Receive Date: 20120425
  Receipt Date: 20140911
  Transmission Date: 20150326
  Serious: Yes (Other)
  Sender: FDA-Public Use
  Company Number: US-ROCHE-1027678

PATIENT
  Age: 41 Year
  Sex: Female
  Weight: 48.12 kg

DRUGS (1)
  1. ACCUTANE [Suspect]
     Active Substance: ISOTRETINOIN
     Indication: PSORIASIS
     Route: 065
     Dates: start: 1986, end: 1987

REACTIONS (7)
  - Irritable bowel syndrome [Unknown]
  - Depression [Unknown]
  - Osteoarthritis [Unknown]
  - Crohn^s disease [Unknown]
  - Inflammatory bowel disease [Unknown]
  - Colitis ulcerative [Unknown]
  - Intestinal obstruction [Unknown]

NARRATIVE: CASE EVENT DATE: 1991
